FAERS Safety Report 19061480 (Version 1)
Quarter: 2021Q1

REPORT INFORMATION
  Report Type: Report from Study
  Country: US (occurrence: US)
  Receive Date: 20210326
  Receipt Date: 20210326
  Transmission Date: 20210420
  Serious: Yes (Hospitalization)
  Sender: FDA-Public Use
  Company Number: US-PFIZER INC-2021314499

PATIENT

DRUGS (1)
  1. KETAMINE HCL [Suspect]
     Active Substance: KETAMINE HYDROCHLORIDE
     Indication: SICKLE CELL ANAEMIA WITH CRISIS
     Dosage: 3 UG/KG/MIN (RANGE OF 2?5 UG/KG/MIN)

REACTIONS (1)
  - Acute chest syndrome [Unknown]
